FAERS Safety Report 17936384 (Version 1)
Quarter: 2020Q2

REPORT INFORMATION
  Report Type: Spontaneous
  Country: US (occurrence: US)
  Receive Date: 20200624
  Receipt Date: 20200624
  Transmission Date: 20200714
  Serious: Yes (Other)
  Sender: FDA-Public Use
  Company Number: US-NOVOPROD-734793

PATIENT
  Age: 5 Month
  Sex: Female

DRUGS (3)
  1. NORDITROPIN [Suspect]
     Active Substance: SOMATROPIN
     Indication: GROWTH HORMONE DEFICIENCY
     Dosage: 0.05 MG, QD
     Route: 058
     Dates: start: 20200602
  2. CORTISOL [HYDROCORTISONE] [Concomitant]
     Indication: ADRENAL INSUFFICIENCY
     Dosage: 1/4 DAILY DOSE
  3. CORTISOL [HYDROCORTISONE] [Concomitant]
     Dosage: 1/2 DOSE DAILY

REACTIONS (2)
  - Viral infection [Recovering/Resolving]
  - Nasopharyngitis [Recovering/Resolving]

NARRATIVE: CASE EVENT DATE: 20200609
